FAERS Safety Report 9276239 (Version 4)
Quarter: 2014Q1

REPORT INFORMATION
  Report Type: Report from Study
  Country: US (occurrence: US)
  Receive Date: 20130507
  Receipt Date: 20140113
  Transmission Date: 20141002
  Serious: No
  Sender: FDA-Public Use
  Company Number: PHEH2013US009954

PATIENT
  Sex: Female

DRUGS (9)
  1. TASIGNA [Suspect]
     Indication: CHRONIC MYELOID LEUKAEMIA
     Dosage: 300 MG, Q12H
     Route: 048
     Dates: start: 20101011
  2. TASIGNA [Suspect]
     Dosage: 300 MG, Q12H
     Route: 048
     Dates: start: 201010
  3. EFFIENT [Concomitant]
     Dosage: 10 MG, UNK
  4. FUROSEMIDE [Concomitant]
     Dosage: 40 MG, UNK
  5. LIPITOR [Concomitant]
     Dosage: 10 MG, UNK
  6. METOPROLOL TARTRATE [Concomitant]
     Dosage: 50 MG, UNK
  7. LEVOTHYROXINE SODIUM [Concomitant]
  8. ALEVE [Concomitant]
  9. ADVEL [Concomitant]

REACTIONS (10)
  - Skin disorder [Unknown]
  - Hair texture abnormal [Unknown]
  - Alopecia [Unknown]
  - Dry skin [Unknown]
  - Pruritus [Unknown]
  - Dyspnoea [Unknown]
  - Sinusitis [Unknown]
  - Hypersensitivity [Unknown]
  - Fatigue [Unknown]
  - Rash [Unknown]
